FAERS Safety Report 19575479 (Version 1)
Quarter: 2021Q3

REPORT INFORMATION
  Report Type: Spontaneous
  Country: US (occurrence: US)
  Receive Date: 20210717
  Receipt Date: 20210717
  Transmission Date: 20211014
  Serious: No
  Sender: FDA-Public Use
  Company Number: None

PATIENT
  Age: 45 Year
  Sex: Female
  Weight: 85.05 kg

DRUGS (1)
  1. AVEENO SUNSCREEN LOTION UNSPECIFIED [Suspect]
     Active Substance: AVOBENZONE\HOMOSALATE\OCTISALATE\OCTOCRYLENE\OXYBENZONE

REACTIONS (1)
  - Rash [None]

NARRATIVE: CASE EVENT DATE: 20210716
